FAERS Safety Report 7044001-6 (Version None)
Quarter: 2010Q4

REPORT INFORMATION
  Report Type: 
  Country: None (occurrence: None)
  Receive Date: 20101012
  Receipt Date: 20101012
  Transmission Date: 20110411
  Serious: Yes (Other)
  Sender: FDA-Public Use
  Company Number: None

PATIENT
  Age: 40 Year
  Sex: Female
  Weight: 54.4316 kg

DRUGS (1)
  1. ZOLPIDEM [Suspect]
     Indication: POOR QUALITY SLEEP
     Dosage: 10MG ONCE A DAY PO
     Route: 048
     Dates: start: 20090301, end: 20100301

REACTIONS (7)
  - AMNESIA [None]
  - AUTOIMMUNE DISORDER [None]
  - MUSCULOSKELETAL STIFFNESS [None]
  - PAIN [None]
  - SLEEP SEX [None]
  - URINARY TRACT INFECTION [None]
  - VICTIM OF SEXUAL ABUSE [None]
